FAERS Safety Report 16520051 (Version 2)
Quarter: 2019Q3

REPORT INFORMATION
  Report Type: Spontaneous
  Country: NL (occurrence: NL)
  Receive Date: 20190702
  Receipt Date: 20190731
  Transmission Date: 20191004
  Serious: Yes (Other)
  Sender: FDA-Public Use
  Company Number: NL-MYLANLABS-2019M1061396

PATIENT
  Sex: Male

DRUGS (21)
  1. TRACYDAL [Interacting]
     Active Substance: TRANYLCYPROMINE SULFATE
     Dosage: 2.5 TABLETS A DAY IN THE MORNING
     Dates: start: 201901
  2. TRACYDAL [Interacting]
     Active Substance: TRANYLCYPROMINE SULFATE
     Dosage: MORNING, AFTER SOME DAYS DISCONTINUED
     Dates: start: 201707, end: 201707
  3. PRIADEL                            /00033702/ [Concomitant]
     Active Substance: LITHIUM CARBONATE
     Indication: MOOD SWINGS
     Dosage: 1000 MILLIGRAM, QD
  4. TRACYDAL [Interacting]
     Active Substance: TRANYLCYPROMINE SULFATE
     Dosage: 3 TABLETS (60 MG) PER DAY IN THE MORINING
     Dates: start: 2017, end: 2017
  5. TRACYDAL [Interacting]
     Active Substance: TRANYLCYPROMINE SULFATE
     Dosage: 2 TABLETS (40 MG) PER DAY IN THE MORNING
     Dates: start: 2017, end: 201801
  6. DOSTINEX [Concomitant]
     Active Substance: CABERGOLINE
     Dosage: 0.75 MILLIGRAM, Q3W
  7. TRACYDAL [Interacting]
     Active Substance: TRANYLCYPROMINE SULFATE
     Indication: BIPOLAR II DISORDER
     Dosage: 1.5 TABLETS A DAY IN THE MORNING
     Dates: start: 201810, end: 201811
  8. TRACYDAL [Interacting]
     Active Substance: TRANYLCYPROMINE SULFATE
     Dosage: 2.5 TABLETS (50 MG) PER DAY IN THE MORNING
     Dates: start: 2017, end: 2017
  9. QUETIAPINE. [Suspect]
     Active Substance: QUETIAPINE
     Indication: BIPOLAR DISORDER
     Dosage: 25 MILLIGRAM, QD
  10. TRACYDAL [Interacting]
     Active Substance: TRANYLCYPROMINE SULFATE
     Dosage: 1 TABLET (20 MG) PER DAY IN THE MORNING
     Dates: start: 2017, end: 2017
  11. TRACYDAL [Interacting]
     Active Substance: TRANYLCYPROMINE SULFATE
     Dosage: 2 TABLETS A DAY IN THE MORNING
     Dates: start: 201811, end: 201901
  12. EUTHYROX [Concomitant]
     Active Substance: LEVOTHYROXINE SODIUM
     Indication: HYPERTHYROIDISM
     Dosage: 112 MICROGRAM, QD
  13. TRACYDAL [Interacting]
     Active Substance: TRANYLCYPROMINE SULFATE
     Dosage: 1 TABLET PER DAY IN THE MORNING
     Dates: start: 201809, end: 201810
  14. TRACYDAL [Interacting]
     Active Substance: TRANYLCYPROMINE SULFATE
     Dosage: 2.5 TABLETS (50 MG) PER DAY IN THE MORNING
     Dates: start: 2017, end: 2017
  15. TRACYDAL [Interacting]
     Active Substance: TRANYLCYPROMINE SULFATE
     Dosage: 1.5 TABLETS (30 MG) PER DAY IN THE MORNING
     Dates: start: 2017, end: 2017
  16. QUETIAPINE. [Interacting]
     Active Substance: QUETIAPINE
     Indication: SLEEP DISORDER
  17. TRACYDAL [Interacting]
     Active Substance: TRANYLCYPROMINE SULFATE
     Indication: DRUG INEFFECTIVE
     Dosage: 0.5 MG TABLETS IN THE MORNING
     Dates: start: 201808, end: 201809
  18. TRACYDAL [Interacting]
     Active Substance: TRANYLCYPROMINE SULFATE
     Dosage: HALF A TABLET (10 MG) A DAY IN THE MORNING
     Dates: start: 201707, end: 2017
  19. TRACYDAL [Interacting]
     Active Substance: TRANYLCYPROMINE SULFATE
     Dosage: 2 TABLETS (40 MG) PER DAY IN THE MORNING
     Dates: start: 2017, end: 2017
  20. PRIADEL                            /00033702/ [Concomitant]
     Active Substance: LITHIUM CARBONATE
     Indication: BIPOLAR DISORDER
  21. DOSTINEX [Concomitant]
     Active Substance: CABERGOLINE
     Indication: PROLACTIN-PRODUCING PITUITARY TUMOUR
     Dosage: 0.25 MILLIGRAM

REACTIONS (12)
  - Bradycardia [Recovered/Resolved]
  - Chest pain [Unknown]
  - Contraindicated product administered [Not Recovered/Not Resolved]
  - Drug interaction [Unknown]
  - Hypertension [Not Recovered/Not Resolved]
  - Feeling hot [Not Recovered/Not Resolved]
  - Hypertensive crisis [Recovered/Resolved]
  - Palpitations [Not Recovered/Not Resolved]
  - Hypomania [Unknown]
  - Dizziness [Unknown]
  - Agitation [Unknown]
  - Hyperhidrosis [Not Recovered/Not Resolved]

NARRATIVE: CASE EVENT DATE: 201707
